FAERS Safety Report 8919021 (Version 1)
Quarter: 2012Q4

REPORT INFORMATION
  Report Type: 
  Country: US (occurrence: US)
  Receive Date: 20121121
  Receipt Date: 20121121
  Transmission Date: 20130627
  Serious: No
  Sender: FDA-Public Use
  Company Number: US-ASTRAZENECA-2012SE23671

PATIENT
  Age: 58 Year
  Sex: Female
  Weight: 52.6 kg

DRUGS (5)
  1. NEXIUM [Suspect]
     Indication: ULCER
     Dosage: 40 MG AND 20 MG IN A DAY
     Route: 048
  2. PRILOSEC [Suspect]
     Indication: ULCER
     Route: 048
  3. ZYRTEC [Concomitant]
     Indication: MULTIPLE ALLERGIES
  4. ALLEGRA [Concomitant]
     Indication: MULTIPLE ALLERGIES
  5. VITAMINS [Concomitant]
     Indication: VITAMIN SUPPLEMENTATION

REACTIONS (8)
  - Migraine [Unknown]
  - Seasonal allergy [Unknown]
  - Allergy to plants [Unknown]
  - Mycotic allergy [Unknown]
  - House dust allergy [Unknown]
  - Drug ineffective for unapproved indication [Unknown]
  - Off label use [Unknown]
  - Drug prescribing error [Unknown]
